FAERS Safety Report 11784977 (Version 1)
Quarter: 2015Q4

REPORT INFORMATION
  Report Type: Spontaneous
  Country: US (occurrence: None)
  Receive Date: 20151125
  Receipt Date: 20151125
  Transmission Date: 20160305
  Serious: Yes (Disabling)
  Sender: FDA-Public Use
  Company Number: None

PATIENT
  Age: 25 Year
  Sex: Female
  Weight: 78.02 kg

DRUGS (6)
  1. GINGER. [Concomitant]
     Active Substance: GINGER
  2. CIPROFLOXACIN HCL 500 MG [Suspect]
     Active Substance: CIPROFLOXACIN HYDROCHLORIDE
     Indication: SINUSITIS
     Route: 048
     Dates: start: 20150804, end: 20150805
  3. MULTI-VITAMIN [Concomitant]
     Active Substance: .ALPHA.-TOCOPHEROL ACETATE, DL-\ASCORBIC ACID\CYANOCOBALAMIN\FLUORIDE ION\FOLIC ACID\NIACIN\PYRIDOXINE\RIBOFLAVIN\THIAMINE\VITAMIN A\VITAMIN D
  4. MAGNESIUM [Concomitant]
     Active Substance: MAGNESIUM
  5. BIOTIN [Concomitant]
     Active Substance: BIOTIN
  6. TURMERIC [Concomitant]
     Active Substance: TURMERIC

REACTIONS (7)
  - Drug ineffective [None]
  - Tendon disorder [None]
  - Impaired driving ability [None]
  - Hypoaesthesia [None]
  - Tendonitis [None]
  - Neuropathy peripheral [None]
  - Muscular weakness [None]

NARRATIVE: CASE EVENT DATE: 20150805
